APPROVED DRUG PRODUCT: LEVETIRACETAM IN SODIUM CHLORIDE
Active Ingredient: LEVETIRACETAM
Strength: 1.5GM/100ML (15MG/ML)
Dosage Form/Route: INJECTABLE;INTRAVENOUS
Application: A213532 | Product #003 | TE Code: AP
Applicant: NEXUS PHARMACEUTICALS LLC
Approved: Jul 6, 2020 | RLD: No | RS: No | Type: RX